FAERS Safety Report 15109942 (Version 1)
Quarter: 2018Q3

REPORT INFORMATION
  Report Type: Report from Study
  Country: IT (occurrence: IT)
  Receive Date: 20180705
  Receipt Date: 20180705
  Transmission Date: 20181010
  Serious: Yes (Other)
  Sender: FDA-Public Use
  Company Number: IT-VIFOR (INTERNATIONAL) INC.-VIT-2018-06551

PATIENT
  Age: 56 Year
  Sex: Male
  Weight: 101 kg

DRUGS (1)
  1. VELPHORO [Suspect]
     Active Substance: FERRIC OXYHYDROXIDE
     Indication: BLOOD PHOSPHORUS INCREASED
     Route: 048
     Dates: start: 20180412, end: 20180418

REACTIONS (3)
  - Diarrhoea [Recovering/Resolving]
  - Haemorrhoids [Recovering/Resolving]
  - Haemorrhage [Recovering/Resolving]

NARRATIVE: CASE EVENT DATE: 20180515
